FAERS Safety Report 6699248-5 (Version None)
Quarter: 2010Q2

REPORT INFORMATION
  Report Type: 
  Country: None (occurrence: None)
  Receive Date: 20100427
  Receipt Date: 20100413
  Transmission Date: 20101027
  Serious: Yes (Other)
  Sender: FDA-Public Use
  Company Number: US-ELI_LILLY_AND_COMPANY-US201004004579

PATIENT
  Sex: Female

DRUGS (10)
  1. FORTEO [Suspect]
     Indication: OSTEOPOROSIS
     Dosage: 20 UG, DAILY (1/D)
     Dates: start: 20090701, end: 20100401
  2. GLUCOPHAGE [Concomitant]
     Dosage: UNK, 2/D
  3. PREVACID [Concomitant]
     Dosage: 30 MG, DAILY (1/D)
  4. CALCIUM [Concomitant]
     Dosage: UNK, DAILY (1/D)
  5. CITRACAL [Concomitant]
     Dosage: UNK, DAILY (1/D)
  6. WELCHOL [Concomitant]
     Dosage: 1875 MG, 2/D
  7. ZETIA [Concomitant]
     Dosage: 10 MG, DAILY (1/D)
  8. PAXIL [Concomitant]
     Dosage: 37.5 MG, DAILY (1/D)
  9. AMBIEN [Concomitant]
     Dosage: UNK, EACH EVENING
  10. PERCOCET [Concomitant]
     Dosage: UNK, DAILY (1/D)

REACTIONS (9)
  - BACK DISORDER [None]
  - EAR DISCOMFORT [None]
  - HEART RATE INCREASED [None]
  - PALPITATIONS [None]
  - POOR QUALITY SLEEP [None]
  - SCAR [None]
  - SLEEP DISORDER [None]
  - SPINAL DISORDER [None]
  - TREMOR [None]
